FAERS Safety Report 23463120 (Version 3)
Quarter: 2024Q1

REPORT INFORMATION
  Report Type: Report from Study
  Country: US (occurrence: US)
  Receive Date: 20240131
  Receipt Date: 20240220
  Transmission Date: 20240410
  Serious: Yes (Hospitalization, Disabling, Other)
  Sender: FDA-Public Use
  Company Number: US-SA-SAC20240125001735

PATIENT
  Age: 22 Year
  Sex: Male
  Weight: 57.2 kg

DRUGS (4)
  1. ALTUVIIIO [Suspect]
     Active Substance: EFANESOCTOCOG ALFA
     Indication: Factor VIII deficiency
     Dosage: 44 IU/KG (2600 IU), QW FOR ROUTINE PROPHYLAXIS
     Route: 042
     Dates: start: 20240111, end: 20240111
  2. HEMLIBRA [Suspect]
     Active Substance: EMICIZUMAB-KXWH
     Indication: Factor VIII deficiency
     Dosage: 180 MG, QW FOR 4 WEEKS FOR PROPHYLAXIS
     Route: 058
     Dates: start: 20210105
  3. HEMLIBRA [Suspect]
     Active Substance: EMICIZUMAB-KXWH
     Dosage: 105 MG, QW
     Route: 058
     Dates: start: 2021
  4. HEMLIBRA [Suspect]
     Active Substance: EMICIZUMAB-KXWH
     Dosage: UNK UNK, QOW
     Route: 065

REACTIONS (12)
  - Transient ischaemic attack [Recovering/Resolving]
  - Haematemesis [Recovering/Resolving]
  - Cognitive disorder [Recovering/Resolving]
  - Headache [Recovering/Resolving]
  - Asthenia [Recovering/Resolving]
  - Facial paralysis [Recovering/Resolving]
  - Sensory loss [Recovering/Resolving]
  - Abdominal pain [Recovering/Resolving]
  - Nausea [Recovering/Resolving]
  - Impaired driving ability [Recovering/Resolving]
  - Vomiting [Recovering/Resolving]
  - Fatigue [Recovering/Resolving]

NARRATIVE: CASE EVENT DATE: 20240101
